FAERS Safety Report 7345208-0 (Version None)
Quarter: 2011Q1

REPORT INFORMATION
  Report Type: 
  Country: None (occurrence: None)
  Receive Date: 20110310
  Receipt Date: 20110301
  Transmission Date: 20110831
  Serious: Yes (Other)
  Sender: FDA-Public Use
  Company Number: FR-CEPHALON-2011000835

PATIENT
  Sex: Female
  Weight: 70 kg

DRUGS (10)
  1. ACTIQ [Suspect]
     Route: 002
  2. SKENAN [Concomitant]
     Dates: start: 20070101
  3. LAROXYL [Concomitant]
     Dates: start: 20090901
  4. ATARAX [Concomitant]
     Dates: start: 20110104
  5. ACTIQ [Suspect]
     Route: 002
  6. ACTIQ [Suspect]
     Indication: PAIN
     Route: 002
  7. ACTIQ [Suspect]
     Indication: SPONDYLITIS
     Route: 002
     Dates: start: 20080801
  8. ACTISKENAN [Concomitant]
     Dates: start: 20070101
  9. FENTANYL [Concomitant]
     Route: 062
     Dates: start: 20080801
  10. MATRIFEN [Concomitant]
     Dates: start: 20080423

REACTIONS (3)
  - AMNESIA [None]
  - DRUG DEPENDENCE [None]
  - DRUG PRESCRIBING ERROR [None]
